FAERS Safety Report 8234566-0 (Version None)
Quarter: 2012Q1

REPORT INFORMATION
  Report Type: 
  Country: None (occurrence: None)
  Receive Date: 20120326
  Receipt Date: 20120321
  Transmission Date: 20120608
  Serious: Yes (Death, Hospitalization, Other)
  Sender: FDA-Public Use
  Company Number: MY-SANOFI-AVENTIS-2012SA019927

PATIENT
  Age: 74 Year
  Sex: Male
  Weight: 88.8 kg

DRUGS (9)
  1. MAXOLON [Concomitant]
     Route: 065
  2. CABAZITAXEL [Suspect]
     Route: 042
     Dates: start: 20120315, end: 20120315
  3. CIPROFLOXACIN [Concomitant]
     Route: 065
  4. DEXAMETHASONE [Concomitant]
     Route: 065
  5. CHLORPHENIRAMINE MALEATE [Concomitant]
     Route: 065
  6. LOMOTIL [Concomitant]
     Route: 065
  7. PREDNISOLONE [Suspect]
     Indication: PROSTATE CANCER METASTATIC
     Route: 048
  8. RANITIDINE [Concomitant]
     Route: 065
  9. CABAZITAXEL [Suspect]
     Indication: PROSTATE CANCER METASTATIC
     Route: 042
     Dates: start: 20120223, end: 20120223

REACTIONS (3)
  - GASTRIC ULCER HAEMORRHAGE [None]
  - HAEMODYNAMIC INSTABILITY [None]
  - CARDIO-RESPIRATORY ARREST [None]
